FAERS Safety Report 9413634 (Version 3)
Quarter: 2013Q3

REPORT INFORMATION
  Report Type: Spontaneous
  Country: US (occurrence: US)
  Receive Date: 20130722
  Receipt Date: 20130822
  Transmission Date: 20140515
  Serious: Yes (Disabling)
  Sender: FDA-Public Use
  Company Number: US-GILEAD-2013-0079606

PATIENT
  Sex: Male

DRUGS (3)
  1. LETAIRIS [Suspect]
     Indication: PULMONARY HYPERTENSION
     Dosage: 5 MG, QD
     Route: 048
     Dates: start: 20121224
  2. LETAIRIS [Suspect]
     Indication: COLLAGEN-VASCULAR DISEASE
  3. REVATIO [Concomitant]

REACTIONS (7)
  - Exercise tolerance decreased [Unknown]
  - Chronic obstructive pulmonary disease [Unknown]
  - Disease progression [Unknown]
  - Temperature intolerance [Unknown]
  - Dyspnoea exertional [Unknown]
  - Dyspnoea [Unknown]
  - Fatigue [Unknown]
